FAERS Safety Report 18178627 (Version 1)
Quarter: 2020Q3

REPORT INFORMATION
  Report Type: Spontaneous
  Country: US (occurrence: US)
  Receive Date: 20200820
  Receipt Date: 20200820
  Transmission Date: 20201103
  Serious: Yes (Other)
  Sender: FDA-Public Use
  Company Number: US-FRESENIUS MEDICAL CARE RENAL THERAPIES GROUP-FMC-2008-000950

PATIENT
  Age: 59 Year
  Sex: Male
  Weight: 106 kg

DRUGS (10)
  1. TORSEMIDE. [Concomitant]
     Active Substance: TORSEMIDE
  2. HYDRALAZINE [Concomitant]
     Active Substance: HYDRALAZINE HYDROCHLORIDE
  3. HYDRALAZINE [Concomitant]
     Active Substance: HYDRALAZINE HYDROCHLORIDE
  4. VASCEPA [Concomitant]
     Active Substance: ICOSAPENT ETHYL
  5. ATORVASTATIN [Concomitant]
     Active Substance: ATORVASTATIN
  6. DELFLEX WITH DEXTROSE 1.5% LOW MAGNESIUM LOW CALCIUM [Suspect]
     Active Substance: CALCIUM CHLORIDE\DEXTROSE\MAGNESIUM CHLORIDE\SODIUM CHLORIDE\SODIUM LACTATE
     Indication: END STAGE RENAL DISEASE
     Dosage: FILL VOLUME 2600 ML, FILLS 5, DWELL TIME 2 HOURS AND 4 MINUTES, TOTAL VOLUME 12,400 ML, LAST FILL 20
     Route: 033
     Dates: start: 20200303
  7. DELFLEX WITH DEXTROSE 2.5% LOW MAGNESIUM LOW CALCIUM [Suspect]
     Active Substance: CALCIUM CHLORIDE\DEXTROSE\MAGNESIUM CHLORIDE\SODIUM CHLORIDE\SODIUM LACTATE
     Indication: END STAGE RENAL DISEASE
     Dosage: FILL VOLUME 2600 ML, FILLS 5, DWELL TIME 2 HOURS AND 4 MINUTES, TOTAL VOLUME 12,400 ML, LAST FILL 20
     Route: 033
     Dates: start: 20200303
  8. CALCITRIOL. [Concomitant]
     Active Substance: CALCITRIOL
  9. DELFLEX WITH DEXTROSE 4.25% LOW MAGNESIUM LOW CALCIUM [Suspect]
     Active Substance: CALCIUM CHLORIDE\DEXTROSE\MAGNESIUM CHLORIDE\SODIUM CHLORIDE\SODIUM LACTATE
     Indication: END STAGE RENAL DISEASE
     Dosage: FILL VOLUME 2600 ML, FILLS 5, DWELL TIME 2 HOURS AND 4 MINUTES, TOTAL VOLUME 12,400 ML, LAST FILL 20
     Route: 033
     Dates: start: 20200303
  10. RENVELA [Concomitant]
     Active Substance: SEVELAMER CARBONATE

REACTIONS (1)
  - Peritonitis bacterial [Recovering/Resolving]

NARRATIVE: CASE EVENT DATE: 20200414
